FAERS Safety Report 4643454-8 (Version None)
Quarter: 2005Q2

REPORT INFORMATION
  Report Type: 
  Country: None (occurrence: None)
  Receive Date: 20050323
  Receipt Date: 20040224
  Transmission Date: 20051028
  Serious: Yes (Hospitalization)
  Sender: FDA-Public Use
  Company Number: K200400258

PATIENT
  Age: 54 Year
  Sex: Male
  Weight: 105.2 kg

DRUGS (3)
  1. ALTACE [Suspect]
     Indication: HYPERTENSION
  2. ALTACE [Suspect]
     Dosage: 10 MG, QD, ORAL
     Route: 048
     Dates: start: 20040208, end: 20040213
  3. TAMIFLU [Concomitant]

REACTIONS (12)
  - ALANINE AMINOTRANSFERASE INCREASED [None]
  - ASPARTATE AMINOTRANSFERASE INCREASED [None]
  - BLOOD ALKALINE PHOSPHATASE INCREASED [None]
  - BLOOD BILIRUBIN INCREASED [None]
  - CHILLS [None]
  - HAEMOGLOBIN INCREASED [None]
  - HYPERHIDROSIS [None]
  - HYPOTENSION [None]
  - NEUTROPENIA [None]
  - PYREXIA [None]
  - THROMBOCYTOPENIA [None]
  - VOMITING [None]
